FAERS Safety Report 8493164-4 (Version None)
Quarter: 2012Q3

REPORT INFORMATION
  Report Type: 
  Country: None (occurrence: None)
  Receive Date: 20120706
  Receipt Date: 20120627
  Transmission Date: 20120928
  Serious: Yes (Other)
  Sender: FDA-Public Use
  Company Number: GB-JNJFOC-20101100401

PATIENT
  Age: 50 Year
  Sex: Male

DRUGS (3)
  1. PHENYLEPHRINE HCL [Concomitant]
     Indication: PREOPERATIVE CARE
     Route: 048
  2. RISPERIDONE [Suspect]
     Indication: SCHIZOPHRENIA
     Route: 065
  3. TROPICAMIDE [Concomitant]
     Indication: PREOPERATIVE CARE
     Route: 048

REACTIONS (2)
  - FLOPPY IRIS SYNDROME [None]
  - MIOSIS [None]
